FAERS Safety Report 6753258-8 (Version None)
Quarter: 2010Q2

REPORT INFORMATION
  Report Type: 
  Country: None (occurrence: None)
  Receive Date: 20100526
  Receipt Date: 20100302
  Transmission Date: 20101027
  Serious: No
  Sender: FDA-Public Use
  Company Number: 305062

PATIENT
  Age: 57 Year
  Sex: Female

DRUGS (4)
  1. VICTOZA [Suspect]
     Indication: TYPE 2 DIABETES MELLITUS
     Dosage: 1.2 MG, QD, SUBCUTANEOUS
     Route: 058
     Dates: start: 19200217
  2. GLIPIZIDE (GLIZIPIDE) [Concomitant]
  3. ACTOS [Concomitant]
  4. JANUVIA [Concomitant]

REACTIONS (1)
  - NAUSEA [None]
